FAERS Safety Report 5801762-9 (Version None)
Quarter: 2008Q3

REPORT INFORMATION
  Report Type: 
  Country: None (occurrence: None)
  Receive Date: 20080707
  Receipt Date: 20080627
  Transmission Date: 20090109
  Serious: Yes (Hospitalization)
  Sender: FDA-Public Use
  Company Number: GB-AVENTIS-200721203GDDC

PATIENT
  Age: 61 Year
  Sex: Female
  Weight: 77 kg

DRUGS (18)
  1. DOCETAXEL [Suspect]
     Indication: NON-SMALL CELL LUNG CANCER METASTATIC
     Dosage: DOSE: UNK
     Route: 042
     Dates: start: 20071105, end: 20071105
  2. DOCETAXEL [Suspect]
     Route: 042
     Dates: start: 20071126, end: 20071126
  3. PLACEBO [Suspect]
     Indication: NON-SMALL CELL LUNG CANCER METASTATIC
     Dosage: DOSE: UNK DOSE (DAILY FOR 14 DAYS THEN OFF FOR 7 DAYS)
     Route: 048
     Dates: start: 20071105, end: 20071113
  4. PLACEBO [Suspect]
     Dosage: DOSE: UNK DOSE (DAILY FOR 14 DAYS THEN OFF FOR 7 DAYS)
     Route: 048
     Dates: start: 20071126, end: 20071209
  5. FENTANYL [Concomitant]
     Indication: ARTHRALGIA
     Dates: start: 20071001
  6. ACETAMINOPHEN [Concomitant]
     Indication: ARTHRALGIA
     Dates: start: 20071001
  7. ENALAPRIL MALEATE [Concomitant]
     Indication: HYPERTENSION
     Dates: start: 19970101
  8. FUROSEMIDE [Concomitant]
     Indication: HYPERTENSION
     Dates: start: 19970101
  9. DICLOFENAC SODIUM [Concomitant]
     Indication: ARTHRALGIA
     Dates: start: 20071101
  10. OMEPRAZOLE [Concomitant]
     Indication: PROPHYLAXIS
     Dates: start: 20071101, end: 20071115
  11. ACYCLOVIR [Concomitant]
     Indication: HERPES ZOSTER
     Dates: start: 20071112, end: 20071126
  12. ACYCLOVIR [Concomitant]
     Indication: RASH
     Dates: start: 20071112, end: 20071126
  13. ACYCLOVIR [Concomitant]
     Indication: RASH
     Dates: start: 20071112, end: 20071126
  14. DEXAMETHASONE [Concomitant]
     Indication: METASTASES TO CENTRAL NERVOUS SYSTEM
     Dates: start: 20071104, end: 20071107
  15. DEXAMETHASONE [Concomitant]
     Dates: start: 20071116, end: 20071118
  16. DEXAMETHASONE [Concomitant]
     Dates: start: 20071119, end: 20071121
  17. PHENYTOIN [Concomitant]
     Indication: EPILEPSY
     Dates: start: 20071115
  18. LANSOPRAZOLE [Concomitant]
     Dates: start: 20071116

REACTIONS (5)
  - ATRIAL FIBRILLATION [None]
  - HYPERGLYCAEMIA [None]
  - ORAL CANDIDIASIS [None]
  - URINARY TRACT INFECTION [None]
  - VULVOVAGINAL CANDIDIASIS [None]
